FAERS Safety Report 9984913 (Version 1)
Quarter: 2014Q1

REPORT INFORMATION
  Report Type: Report from Study
  Country: US (occurrence: US)
  Receive Date: 20140307
  Receipt Date: 20140307
  Transmission Date: 20141002
  Serious: No
  Sender: FDA-Public Use
  Company Number: US-ABBVIE-14P-163-1186204-00

PATIENT
  Age: 36 Year
  Sex: Female

DRUGS (5)
  1. HUMIRA [Suspect]
     Indication: COLITIS ULCERATIVE
     Dosage: LOADING DOSE
     Dates: start: 20131201, end: 20131201
  2. HUMIRA [Suspect]
     Dates: start: 20131215, end: 20131215
  3. HUMIRA [Suspect]
     Dates: start: 20131229, end: 20131229
  4. HUMIRA [Suspect]
  5. LIALDA [Concomitant]
     Indication: COLITIS ULCERATIVE

REACTIONS (3)
  - Injection site pain [Recovered/Resolved]
  - Injection site pain [Recovered/Resolved]
  - Injection site pain [Recovered/Resolved]
